FAERS Safety Report 23377404 (Version 9)
Quarter: 2024Q1

REPORT INFORMATION
  Report Type: Other
  Country: CA (occurrence: None)
  Receive Date: 20240108
  Receipt Date: 20240212
  Transmission Date: 20240410
  Serious: Yes (Other)
  Sender: FDA-Public Use
  Company Number: CA-ROCHE-3485140

PATIENT
  Age: 30 Year
  Sex: Female

DRUGS (2)
  1. OCREVUS [Suspect]
     Active Substance: OCRELIZUMAB
     Indication: Relapsing-remitting multiple sclerosis
     Dosage: THEN 600 MG EVERY 6 MONTHS
     Route: 042
     Dates: start: 20190625
  2. SOLU-MEDROL [Concomitant]
     Active Substance: METHYLPREDNISOLONE SODIUM SUCCINATE

REACTIONS (6)
  - Influenza [Recovering/Resolving]
  - Pyrexia [Not Recovered/Not Resolved]
  - Hallucination [Recovered/Resolved]
  - Hypersomnia [Unknown]
  - Pneumonia [Unknown]
  - Optic neuritis [Unknown]

NARRATIVE: CASE EVENT DATE: 20231218
